FAERS Safety Report 7425755-3 (Version None)
Quarter: 2011Q2

REPORT INFORMATION
  Report Type: 
  Country: None (occurrence: None)
  Receive Date: 20110420
  Receipt Date: 20100928
  Transmission Date: 20111010
  Serious: Yes (Death)
  Sender: FDA-Public Use
  Company Number: RS-GENZYME-FLUD-1000256

PATIENT
  Age: 54 Year
  Sex: Male

DRUGS (11)
  1. CYCLOPHOSPHAMIDE [Concomitant]
     Indication: CHRONIC LYMPHOCYTIC LEUKAEMIA
     Dosage: 750 MG/M2, UNK
  2. CYCLOPHOSPHAMIDE [Concomitant]
     Dosage: 200 MG/M2, UNK
  3. DOXORUBICIN [Concomitant]
     Indication: ACUTE MYELOID LEUKAEMIA
     Dosage: 50 MG/M2, UNK
     Route: 042
  4. MITOXANTRONE [Concomitant]
     Indication: CHRONIC LYMPHOCYTIC LEUKAEMIA
     Dosage: 8 MG/M2, UNK
  5. DOXORUBICIN [Concomitant]
  6. DOXORUBICIN [Concomitant]
  7. VINCRISTINE [Concomitant]
     Indication: CHRONIC LYMPHOCYTIC LEUKAEMIA
     Dosage: 2 MG, UNK
     Route: 042
  8. DEXAMETHASONE [Concomitant]
     Indication: CHRONIC LYMPHOCYTIC LEUKAEMIA
  9. DOXORUBICIN [Concomitant]
     Indication: CHRONIC LYMPHOCYTIC LEUKAEMIA
  10. FLUDARA [Suspect]
     Indication: CHRONIC LYMPHOCYTIC LEUKAEMIA
     Dosage: 25 MG/M2, UNK
     Route: 065
  11. PREDNISONE [Concomitant]
     Indication: CHRONIC LYMPHOCYTIC LEUKAEMIA
     Dosage: 100 MG, UNK
     Route: 048

REACTIONS (1)
  - ACUTE MYELOID LEUKAEMIA [None]
